FAERS Safety Report 8355174-7 (Version None)
Quarter: 2012Q2

REPORT INFORMATION
  Report Type: 
  Country: None (occurrence: None)
  Receive Date: 20120511
  Receipt Date: 20120430
  Transmission Date: 20120825
  Serious: Yes (Other)
  Sender: FDA-Public Use
  Company Number: GB-ELI_LILLY_AND_COMPANY-GB201205000039

PATIENT
  Age: 71 Year
  Sex: Male

DRUGS (7)
  1. SUSTANON                                /NET/ [Concomitant]
  2. HYDROCORTISONE [Concomitant]
  3. ATENOLOL [Concomitant]
  4. BENDROFLUMETHIAZIDE [Concomitant]
  5. LEVOTHYROXINE SODIUM [Concomitant]
  6. NIFEDIPINE [Concomitant]
  7. SOMATROPIN RDNA [Suspect]
     Indication: GROWTH HORMONE DEFICIENCY
     Dosage: 0.4 MG, UNK
     Route: 058
     Dates: end: 20111018

REACTIONS (1)
  - PITUITARY TUMOUR RECURRENT [None]
